FAERS Safety Report 12448799 (Version 1)
Quarter: 2016Q2

REPORT INFORMATION
  Report Type: Spontaneous
  Country: JP (occurrence: JP)
  Receive Date: 20160608
  Receipt Date: 20160608
  Transmission Date: 20160815
  Serious: Yes (Hospitalization)
  Sender: FDA-Public Use
  Company Number: JP-JNJFOC-20160605018

PATIENT
  Age: 64 Year
  Sex: Male

DRUGS (10)
  1. MUCOSTA [Concomitant]
     Active Substance: REBAMIPIDE
     Route: 065
  2. SPIRONOLACTONE. [Concomitant]
     Active Substance: SPIRONOLACTONE
     Route: 048
  3. XARELTO [Suspect]
     Active Substance: RIVAROXABAN
     Indication: THROMBOSIS PROPHYLAXIS
     Route: 048
     Dates: start: 20160216, end: 20160419
  4. URIEF [Concomitant]
     Active Substance: SILODOSIN
     Route: 048
  5. RIOCIGUAT [Concomitant]
     Active Substance: RIOCIGUAT
     Route: 048
  6. VOLIBRIS [Concomitant]
     Active Substance: AMBRISENTAN
     Route: 048
  7. NEXIUM [Concomitant]
     Active Substance: ESOMEPRAZOLE MAGNESIUM
     Route: 048
  8. TOLVAPTAN [Concomitant]
     Active Substance: TOLVAPTAN
     Route: 048
  9. XARELTO [Suspect]
     Active Substance: RIVAROXABAN
     Indication: PULMONARY HYPERTENSION
     Route: 048
     Dates: start: 20160216, end: 20160419
  10. FEBUXOSTAT. [Concomitant]
     Active Substance: FEBUXOSTAT
     Route: 048

REACTIONS (2)
  - Cardiac tamponade [Recovered/Resolved]
  - Off label use [Unknown]

NARRATIVE: CASE EVENT DATE: 20160419
